FAERS Safety Report 22723905 (Version 3)
Quarter: 2023Q4

REPORT INFORMATION
  Report Type: Report from Study
  Country: US (occurrence: US)
  Receive Date: 20230719
  Receipt Date: 20231214
  Transmission Date: 20240110
  Serious: Yes (Death, Other)
  Sender: FDA-Public Use
  Company Number: US-ABBVIE-5332768

PATIENT
  Age: 71 Year
  Sex: Male
  Weight: 68.039 kg

DRUGS (17)
  1. DUOPA [Suspect]
     Active Substance: CARBIDOPA\LEVODOPA
     Indication: Parkinson^s disease
     Dosage: FORM STRENGTH: 100 MILLILITERS?MORNING DOSE 3.9 ML, BASAL RATE 2.8 ML, EXTRA DOSE 1.8 ML?LAST ADM...
     Route: 050
     Dates: start: 20171113
  2. DUOPA [Suspect]
     Active Substance: CARBIDOPA\LEVODOPA
     Dosage: FORM STRENGTH: 100 MILLILITER(S)
     Route: 050
     Dates: start: 20171114
  3. BOTOX [Suspect]
     Active Substance: ONABOTULINUMTOXINA
     Indication: Dystonia
     Dosage: TIME INTERVAL: AS NECESSARY
     Route: 065
  4. PRAMIPEXOLE DIHYDROCHLORIDE [Concomitant]
     Active Substance: PRAMIPEXOLE DIHYDROCHLORIDE
     Indication: Product used for unknown indication
     Dosage: FORM STRENGTH: 1 MG
     Route: 048
  5. CARBIDOPA LEVODOPA [Concomitant]
     Active Substance: CARBIDOPA\LEVODOPA
     Indication: Product used for unknown indication
     Dosage: 1 TABLET AT BEDTIME ONLY IF NOT DUOPA
     Route: 048
  6. AMANTADINE [Concomitant]
     Active Substance: AMANTADINE
     Indication: Product used for unknown indication
     Dosage: FORM STRENGTH: 100 MG
     Route: 048
  7. FLOMAX [Concomitant]
     Active Substance: TAMSULOSIN HYDROCHLORIDE
     Indication: Product used for unknown indication
     Dosage: FORM STRENGTH: 0.4 MG
     Route: 048
  8. DONEPEZIL [Concomitant]
     Active Substance: DONEPEZIL
     Indication: Product used for unknown indication
     Dosage: FORM STRENGTH: 10 MG
     Route: 048
  9. FLUOXETINE [Concomitant]
     Active Substance: FLUOXETINE HYDROCHLORIDE
     Indication: Depression
     Dosage: FORM STRENGTH: 10 MG
     Route: 048
  10. TRIHEXYPHENIDYL [Concomitant]
     Active Substance: TRIHEXYPHENIDYL
     Indication: Product used for unknown indication
     Dosage: FORM STRENGTH: 2 MG
     Route: 048
  11. AMOXICILLIN [Concomitant]
     Active Substance: AMOXICILLIN
     Indication: Product used for unknown indication
     Route: 048
     Dates: start: 20230315
  12. VITAMIN B COMPLEX [Concomitant]
     Active Substance: CYANOCOBALAMIN\DEXPANTHENOL\NIACINAMIDE\PYRIDOXINE HYDROCHLORIDE\RIBOFLAVIN 5^-PHOSPHATE SODIUM\THIA
     Indication: Product used for unknown indication
     Dosage: 1 TABLET DAILY
     Dates: start: 20210809
  13. BACLOFEN [Concomitant]
     Active Substance: BACLOFEN
     Indication: Product used for unknown indication
     Dosage: 1 TABLET AT BEDTIME
     Route: 048
     Dates: start: 20210412
  14. PFIZER-BIONTECH COVID-19 VACCINE [Concomitant]
     Active Substance: TOZINAMERAN
     Indication: COVID-19 immunisation
     Dates: start: 20210421
  15. INFLUENZA VIRUS VACCINE [Concomitant]
     Active Substance: INFLUENZA VIRUS VACCINE
     Indication: Influenza
     Dates: start: 20211006
  16. AUGMENTIN [Suspect]
     Active Substance: AMOXICILLIN\CLAVULANATE POTASSIUM
     Indication: Urinary tract infection
     Route: 065
     Dates: start: 2023
  17. ZITHROMAX [Suspect]
     Active Substance: AZITHROMYCIN DIHYDRATE
     Indication: Urinary tract infection
     Route: 065
     Dates: start: 2023

REACTIONS (45)
  - Dyspnoea [Fatal]
  - Colostomy [Recovered/Resolved]
  - Mobility decreased [Unknown]
  - Stress [Recovered/Resolved]
  - Hospice care [Unknown]
  - Gait disturbance [Unknown]
  - Deep brain stimulation [Unknown]
  - Skin wound [Unknown]
  - Disturbance in attention [Unknown]
  - Fall [Recovered/Resolved]
  - Restless legs syndrome [Unknown]
  - Tachycardia [Unknown]
  - Depression [Recovered/Resolved]
  - Cognitive disorder [Unknown]
  - Rapid eye movement sleep behaviour disorder [Unknown]
  - Dysarthria [Unknown]
  - Dyskinesia [Unknown]
  - Wheelchair user [Unknown]
  - Fatigue [Unknown]
  - Abnormal dreams [Unknown]
  - Hallucination, visual [Unknown]
  - Torticollis [Unknown]
  - Choking [Unknown]
  - Urinary tract infection [Unknown]
  - Slow speech [Unknown]
  - Staphylococcal infection [Unknown]
  - Pneumonia [Unknown]
  - Bedridden [Unknown]
  - Device breakage [Unknown]
  - COVID-19 [Unknown]
  - Salivary hypersecretion [Unknown]
  - Apathy [Unknown]
  - On and off phenomenon [Unknown]
  - Urinary incontinence [Unknown]
  - Loss of personal independence in daily activities [Unknown]
  - Drooling [Unknown]
  - Memory impairment [Unknown]
  - Speech disorder [Unknown]
  - Dementia [Unknown]
  - Mental impairment [Unknown]
  - Device expulsion [Unknown]
  - Cough [Unknown]
  - Constipation [Recovered/Resolved]
  - Myalgia [Unknown]
  - Hallucination [Unknown]

NARRATIVE: CASE EVENT DATE: 20180813
